FAERS Safety Report 23291553 (Version 1)
Quarter: 2023Q4

REPORT INFORMATION
  Report Type: Spontaneous
  Country: US (occurrence: US)
  Receive Date: 20231213
  Receipt Date: 20231213
  Transmission Date: 20240110
  Serious: No
  Sender: FDA-Public Use
  Company Number: US-ALVOGEN-2023090774

PATIENT
  Sex: Female

DRUGS (3)
  1. FENTANYL [Suspect]
     Active Substance: FENTANYL\FENTANYL CITRATE
     Indication: Pain
     Dosage: EXPIRATION DATE: UU-JULY-2025.?CHANGE THE PATCH EVERY 48HRS.?STRENGTH :25MCG/HR
     Dates: start: 2023
  2. OXYCODONE [Concomitant]
     Active Substance: OXYCODONE
     Indication: Pain
  3. GABAPENTIN [Concomitant]
     Active Substance: GABAPENTIN
     Indication: Pain

REACTIONS (4)
  - Application site irritation [Unknown]
  - Application site erythema [Unknown]
  - Device malfunction [Unknown]
  - Device adhesion issue [Unknown]
